FAERS Safety Report 4927485-6 (Version None)
Quarter: 2006Q1

REPORT INFORMATION
  Report Type: 
  Country: None (occurrence: None)
  Receive Date: 20060228
  Receipt Date: 20050414
  Transmission Date: 20060701
  Serious: Yes (Death, Hospitalization)
  Sender: FDA-Public Use
  Company Number: US-MERCK-0504USA02726

PATIENT
  Age: 76 Year
  Sex: Female
  Weight: 45 kg

DRUGS (1)
  1. VIOXX [Suspect]
     Indication: ARTHRALGIA
     Route: 048
     Dates: start: 20010301, end: 20030901

REACTIONS (5)
  - CARDIAC ARREST [None]
  - CARDIAC DISORDER [None]
  - CARDIOGENIC SHOCK [None]
  - CARDIOVASCULAR DISORDER [None]
  - CORONARY ARTERY DISEASE [None]
